FAERS Safety Report 20124652 (Version 1)
Quarter: 2021Q4

REPORT INFORMATION
  Report Type: Spontaneous
  Country: US (occurrence: None)
  Receive Date: 20211126
  Receipt Date: 20211126
  Transmission Date: 20220303
  Serious: No
  Sender: FDA-Public Use
  Company Number: None

PATIENT
  Age: 60 Year
  Sex: Male
  Weight: 72 kg

DRUGS (1)
  1. CASIRIVIMAB\IMDEVIMAB [Suspect]
     Active Substance: CASIRIVIMAB\IMDEVIMAB
     Dosage: FREQUENCY : ONCE;?
     Route: 042
     Dates: start: 20211123, end: 20211123

REACTIONS (9)
  - Dizziness [None]
  - Dizziness [None]
  - Nausea [None]
  - Hyperhidrosis [None]
  - Lethargy [None]
  - Speech disorder [None]
  - Hypotension [None]
  - Syncope [None]
  - Angina pectoris [None]

NARRATIVE: CASE EVENT DATE: 20211123
